FAERS Safety Report 6554930-5 (Version None)
Quarter: 2010Q1

REPORT INFORMATION
  Report Type: 
  Country: None (occurrence: None)
  Receive Date: 20100126
  Receipt Date: 20100112
  Transmission Date: 20100710
  Serious: Yes (Other)
  Sender: FDA-Public Use
  Company Number: 2007AL004248

PATIENT
  Age: 58 Year
  Sex: Female

DRUGS (12)
  1. DEXAMETHASONE [Suspect]
     Indication: POSTOPERATIVE CARE
     Dosage: OPH
     Route: 047
     Dates: start: 20070614
  2. LIDOCAINE HYDROCHLORIDE 2% [Suspect]
     Indication: CATARACT OPERATION
     Dosage: 2 ML; OPH
     Route: 047
     Dates: start: 20070614, end: 20070614
  3. PHENYLEPHRINE HCL [Suspect]
     Indication: PREOPERATIVE CARE
     Dosage: 1 DF; OPH
     Route: 047
     Dates: start: 20070614, end: 20070614
  4. GLYCEROL 2.6% [Concomitant]
  5. POVIDONE IODINE [Concomitant]
  6. OCUFEN [Concomitant]
  7. OFLOXACIN [Concomitant]
  8. CYCLOPENTOLATE HCL [Concomitant]
  9. PROXYMETACAINE [Concomitant]
  10. HYALURONATE SODIUM [Concomitant]
  11. VANCOMYCIN [Concomitant]
  12. EPINEPHRINE [Concomitant]

REACTIONS (1)
  - TOXIC ANTERIOR SEGMENT SYNDROME [None]
